FAERS Safety Report 5813943-9 (Version None)
Quarter: 2008Q3

REPORT INFORMATION
  Report Type: 
  Country: None (occurrence: None)
  Receive Date: 20080717
  Receipt Date: 20080707
  Transmission Date: 20090109
  Serious: Yes (Other)
  Sender: FDA-Public Use
  Company Number: LB-AMGEN-UK293287

PATIENT
  Age: 53 Year
  Sex: Female

DRUGS (5)
  1. NEUPOGEN [Suspect]
     Indication: CHEMOTHERAPY
     Route: 058
     Dates: start: 20080201, end: 20080601
  2. IFOSFAMIDE [Concomitant]
     Dates: end: 20080101
  3. DOXORUBICIN HYDROCHLORIDE [Concomitant]
     Dates: end: 20080101
  4. GEMZAR [Concomitant]
     Dates: start: 20080101
  5. TAXOTERE [Concomitant]
     Dates: start: 20080401

REACTIONS (1)
  - TOOTHACHE [None]
